FAERS Safety Report 6490185-8 (Version None)
Quarter: 2009Q4

REPORT INFORMATION
  Report Type: 
  Country: None (occurrence: None)
  Receive Date: 20091211
  Receipt Date: 20091030
  Transmission Date: 20100525
  Serious: No
  Sender: FDA-Public Use
  Company Number: A0814215A

PATIENT
  Sex: Female

DRUGS (2)
  1. FLUTICASONE PROPIONATE [Suspect]
     Indication: MULTIPLE ALLERGIES
     Dosage: 2SPR AS REQUIRED
     Route: 045
     Dates: start: 20070101, end: 20070101
  2. NO CONCURRENT MEDICATION [Concomitant]

REACTIONS (1)
  - PAROSMIA [None]
